FAERS Safety Report 9252035 (Version 1)
Quarter: 2013Q2

REPORT INFORMATION
  Report Type: Spontaneous
  Country: FR (occurrence: FR)
  Receive Date: 20130424
  Receipt Date: 20130424
  Transmission Date: 20140414
  Serious: Yes (Death, Hospitalization)
  Sender: FDA-Public Use
  Company Number: FR-JNJFOC-20130412047

PATIENT
  Age: 82 Year
  Sex: Female

DRUGS (10)
  1. XARELTO [Suspect]
     Indication: ARRHYTHMIA
     Route: 048
     Dates: start: 20120928, end: 20121009
  2. XARELTO [Suspect]
     Indication: CEREBROVASCULAR ACCIDENT PROPHYLAXIS
     Route: 048
     Dates: start: 20120928, end: 20121009
  3. TRIFLUCAN [Concomitant]
     Indication: ANTIBIOTIC THERAPY
     Route: 065
  4. LASILIX [Concomitant]
     Route: 048
     Dates: end: 20121024
  5. IPERTEN [Concomitant]
     Route: 048
     Dates: end: 20121024
  6. XELEVIA [Concomitant]
     Route: 048
     Dates: end: 20121024
  7. CORDARONE [Concomitant]
     Route: 048
     Dates: start: 20120928
  8. ROCEPHIN [Concomitant]
     Indication: SEPSIS
     Route: 048
     Dates: start: 20120928, end: 20121009
  9. TAZOCILLINE [Concomitant]
     Indication: ANTIBIOTIC THERAPY
     Route: 065
  10. AMAREL [Concomitant]
     Route: 048
     Dates: end: 20121024

REACTIONS (2)
  - Coagulopathy [Fatal]
  - Contraindication to surgery [Fatal]
